APPROVED DRUG PRODUCT: NEO-SYNALAR
Active Ingredient: FLUOCINOLONE ACETONIDE; NEOMYCIN SULFATE
Strength: 0.025%;EQ 3.5MG BASE/GM
Dosage Form/Route: CREAM;TOPICAL
Application: A060700 | Product #001
Applicant: MEDIMETRIKS PHARMACEUTICALS INC
Approved: Approved Prior to Jan 1, 1982 | RLD: No | RS: Yes | Type: RX